FAERS Safety Report 24369777 (Version 1)
Quarter: 2024Q3

REPORT INFORMATION
  Report Type: Spontaneous
  Country: JP (occurrence: JP)
  Receive Date: 20240927
  Receipt Date: 20240927
  Transmission Date: 20241016
  Serious: Yes (Life-Threatening, Other)
  Sender: ASTELLAS
  Company Number: JP-ASTELLAS-2024-AER-008527

PATIENT
  Age: 9 Decade
  Sex: Female

DRUGS (1)
  1. PROGRAF [Suspect]
     Active Substance: TACROLIMUS
     Indication: Rheumatoid arthritis
     Dosage: AFTER DINNER
     Route: 065

REACTIONS (4)
  - Hepatic failure [Unknown]
  - Hepatic cancer [Unknown]
  - Liver disorder [Unknown]
  - Off label use [Unknown]
